FAERS Safety Report 20526044 (Version 6)
Quarter: 2022Q3

REPORT INFORMATION
  Report Type: Report from Study
  Country: CN (occurrence: None)
  Receive Date: 20220228
  Receipt Date: 20220914
  Transmission Date: 20221027
  Serious: Yes (Hospitalization)
  Sender: FDA-Public Use
  Company Number: CN-ROCHE-3033556

PATIENT
  Age: 59 Year
  Sex: Male
  Weight: 72 kg

DRUGS (16)
  1. PLACEBO [Suspect]
     Active Substance: UNSPECIFIED INGREDIENT
     Indication: Non-small cell lung cancer stage IV
     Dosage: MOST RECENT DOSE OF BLINDED ATEZOLIZUMAB PRIOR TO EVENT: 28/JAN/2022
     Route: 041
     Dates: start: 20210709
  2. CARBOPLATIN [Suspect]
     Active Substance: CARBOPLATIN
     Indication: Non-small cell lung cancer stage IV
     Dosage: MOST RECENT DOSE (650 MG) OF CARBOPLATIN PRIOR TO EVENT ABNORMAL LIVER FUNCTION: 16/SEP/2021
     Route: 042
     Dates: start: 20210709
  3. BEVACIZUMAB [Suspect]
     Active Substance: BEVACIZUMAB
     Indication: Non-small cell lung cancer stage IV
     Dosage: MOST RECENT DOSE OF BEVACIZUMAB PRIOR TO EVENT ABNORMAL LIVER FUNCTION: 28/JAN/2022
     Route: 042
     Dates: start: 20210709
  4. PEMETREXED [Suspect]
     Active Substance: PEMETREXED
     Indication: Non-small cell lung cancer stage IV
     Dosage: MOST RECENT DOSE (650 MG) OF PEMETREXED PRIOR TO EVENT ABNORMAL LIVER FUNCTION: 28/JAN/2022
     Route: 042
     Dates: start: 20210709
  5. PALONOSETRON HYDROCHLORIDE [Concomitant]
     Active Substance: PALONOSETRON HYDROCHLORIDE
     Dates: start: 20220128, end: 20220128
  6. LANSOPRAZOLE [Concomitant]
     Active Substance: LANSOPRAZOLE
     Dates: start: 20220128, end: 20220128
  7. DEXAMETHASONE ACETATE [Concomitant]
     Active Substance: DEXAMETHASONE ACETATE
     Route: 048
     Dates: start: 20220127, end: 20220127
  8. DEXAMETHASONE ACETATE [Concomitant]
     Active Substance: DEXAMETHASONE ACETATE
     Route: 048
     Dates: start: 20220128, end: 20220128
  9. PHOSPHOLIPID [Concomitant]
     Active Substance: PHOSPHOLIPID
     Dates: start: 20220218, end: 20220225
  10. METHYLPREDNISOLONE SODIUM SUCCINATE [Concomitant]
     Active Substance: METHYLPREDNISOLONE SODIUM SUCCINATE
     Dates: start: 20220221, end: 20220223
  11. CALCIUM GLUCONATE [Concomitant]
     Active Substance: CALCIUM GLUCONATE
     Dates: start: 20220221, end: 20220224
  12. OMEPRAZOLE SODIUM [Concomitant]
     Active Substance: OMEPRAZOLE SODIUM
     Dates: start: 20220221, end: 20220223
  13. MIZOLASTINE [Concomitant]
     Active Substance: MIZOLASTINE
     Dates: start: 20220221, end: 20220225
  14. UREA [Concomitant]
     Active Substance: UREA
     Indication: Dermatitis
     Dates: start: 20220221, end: 20220228
  15. CALAMINE [Concomitant]
     Active Substance: CALAMINE\FERRIC OXIDE RED\ZINC OXIDE
     Indication: Dermatitis
     Dates: start: 20220221, end: 20220228
  16. BAIXINTONG [Concomitant]
     Indication: Hypertension
     Dates: start: 20220106

REACTIONS (1)
  - Hepatic function abnormal [Recovered/Resolved]

NARRATIVE: CASE EVENT DATE: 20220218
